FAERS Safety Report 11002687 (Version 1)
Quarter: 2015Q2

REPORT INFORMATION
  Report Type: Spontaneous
  Country: US (occurrence: US)
  Receive Date: 20150408
  Receipt Date: 20150408
  Transmission Date: 20150821
  Serious: Yes (Disabling, Other)
  Sender: FDA-Public Use
  Company Number: US-ABBVIE-15P-163-1370024-00

PATIENT

DRUGS (3)
  1. WELLBUTRIN [Suspect]
     Active Substance: BUPROPION HYDROCHLORIDE
     Indication: MATERNAL EXPOSURE TIMING UNSPECIFIED
     Route: 064
  2. DEPAKOTE [Suspect]
     Active Substance: DIVALPROEX SODIUM
     Indication: MATERNAL EXPOSURE TIMING UNSPECIFIED
     Route: 064
  3. PROZAC [Suspect]
     Active Substance: FLUOXETINE HYDROCHLORIDE
     Indication: MATERNAL EXPOSURE TIMING UNSPECIFIED
     Route: 064

REACTIONS (15)
  - Deformity [Unknown]
  - Atrial septal defect [Unknown]
  - Injury [Unknown]
  - Anxiety [Unknown]
  - Social problem [Unknown]
  - Multiple injuries [Unknown]
  - Pulmonary valve stenosis [Unknown]
  - Patent ductus arteriosus [Unknown]
  - Pulmonary hypertension [Unknown]
  - Congenital pulmonary valve disorder [Unknown]
  - Foetal exposure during pregnancy [Unknown]
  - Respiratory distress [Unknown]
  - Pain [Unknown]
  - Anhedonia [Unknown]
  - Economic problem [Unknown]
